FAERS Safety Report 18733199 (Version 2)
Quarter: 2021Q2

REPORT INFORMATION
  Report Type: Spontaneous
  Country: US (occurrence: US)
  Receive Date: 20210113
  Receipt Date: 20210518
  Transmission Date: 20210717
  Serious: Yes (Life-Threatening, Hospitalization, Other)
  Sender: FDA-Public Use
  Company Number: US-DRREDDYS-USA/USA/21/0130818

PATIENT
  Age: 41 Year
  Sex: Male

DRUGS (1)
  1. PROPOFOL INJECTABLE EMULSION [Suspect]
     Active Substance: PROPOFOL
     Indication: SEDATION

REACTIONS (4)
  - Hypertriglyceridaemia [Recovered/Resolved]
  - Thrombosis in device [Recovered/Resolved]
  - Propofol infusion syndrome [Recovered/Resolved]
  - Device malfunction [Recovered/Resolved]
